FAERS Safety Report 8797334 (Version 1)
Quarter: 2012Q4

REPORT INFORMATION
  Report Type: 
  Country: US (occurrence: US)
  Receive Date: 20120920
  Receipt Date: 20120920
  Transmission Date: 20130627
  Serious: No
  Sender: FDA-Public Use
  Company Number: US-BAYER-2012-097430

PATIENT
  Age: 62 Year
  Sex: Female
  Weight: 68 kg

DRUGS (4)
  1. ALEVE CAPLET/TABLET,MIDOL EXTENDED RELIEF CAPLET [Suspect]
     Indication: PAIN
     Dosage: 2 DF, PRN
     Route: 048
     Dates: start: 201109
  2. AREDIA [Concomitant]
  3. FLEXAMINE [Concomitant]
  4. RADIATION THERAPY [Concomitant]

REACTIONS (1)
  - Pain [None]
